FAERS Safety Report 21096549 (Version 1)
Quarter: 2022Q3

REPORT INFORMATION
  Report Type: Spontaneous
  Country: US (occurrence: US)
  Receive Date: 20220718
  Receipt Date: 20220718
  Transmission Date: 20221027
  Serious: No
  Sender: FDA-Public Use
  Company Number: US-TEVA-2022-US-2054178

PATIENT
  Age: 55 Year
  Sex: Female

DRUGS (1)
  1. BUPRENORPHINE [Suspect]
     Active Substance: BUPRENORPHINE
     Indication: Pain
     Dosage: 7.5 MCG/HR
     Route: 062
     Dates: start: 20220701

REACTIONS (7)
  - Nausea [Not Recovered/Not Resolved]
  - Dizziness [Not Recovered/Not Resolved]
  - Visual impairment [Recovered/Resolved]
  - Vomiting [Recovered/Resolved]
  - Breath sounds abnormal [Recovered/Resolved]
  - Asthenia [Recovered/Resolved]
  - Hypersomnia [Recovered/Resolved]

NARRATIVE: CASE EVENT DATE: 20220704
